FAERS Safety Report 9888093 (Version 1)
Quarter: 2014Q1

REPORT INFORMATION
  Report Type: Spontaneous
  Country: US (occurrence: US)
  Receive Date: 20140211
  Receipt Date: 20140211
  Transmission Date: 20141002
  Serious: No
  Sender: FDA-Public Use
  Company Number: US-BAUSCH-BL-2013-004846

PATIENT
  Age: 53 Year
  Sex: Female

DRUGS (2)
  1. SULFACETAMIDE SODIUM OPHTHALMIC SOLUTION USP 10% [Suspect]
     Indication: EYE INFECTION
     Dosage: 1 DROP; ONCE; RIGHT EYE
     Route: 047
     Dates: start: 20130708, end: 20130708
  2. SULFACETAMIDE SODIUM OPHTHALMIC SOLUTION USP 10% [Suspect]
     Dosage: 1 DROP; ONCE; LEFT EYE
     Route: 047
     Dates: start: 20130708, end: 20130708

REACTIONS (6)
  - Visual impairment [Not Recovered/Not Resolved]
  - Instillation site pain [Recovered/Resolved]
  - Diplopia [Not Recovered/Not Resolved]
  - Vision blurred [Not Recovered/Not Resolved]
  - Eye pain [Not Recovered/Not Resolved]
  - Asthenopia [Not Recovered/Not Resolved]
